FAERS Safety Report 8570511-6 (Version None)
Quarter: 2012Q3

REPORT INFORMATION
  Report Type: 
  Country: None (occurrence: None)
  Receive Date: 20120803
  Receipt Date: 20120725
  Transmission Date: 20120928
  Serious: Yes (Hospitalization, Other)
  Sender: FDA-Public Use
  Company Number: US-ASTRAZENECA-2012SE15014

PATIENT
  Age: 47 Year
  Sex: Female
  Weight: 87.5 kg

DRUGS (27)
  1. ZANTAC [Suspect]
     Indication: GASTROOESOPHAGEAL REFLUX DISEASE
     Route: 065
  2. DEPAKOTE [Concomitant]
     Indication: CONVULSION PROPHYLAXIS
     Route: 048
  3. PREVACID [Concomitant]
  4. GABAPENTIN [Concomitant]
     Indication: NERVOUS SYSTEM DISORDER
     Route: 048
  5. TRAMADOL HCL [Concomitant]
     Indication: PAIN
     Dosage: 50 MG, 1 TO 2 TABLETS 4 TIMES A DAY AS NEEDED
  6. ALPRAZOLAM [Concomitant]
     Indication: ANXIETY
     Dosage: 1TABLET, 2-3 TIMES, AS NEEDED
  7. FLOVENT [Suspect]
     Route: 065
  8. GABAPENTIN [Concomitant]
     Indication: INTERVERTEBRAL DISC DEGENERATION
     Route: 048
  9. DEPAKOTE [Concomitant]
     Indication: HEADACHE
     Route: 048
  10. MULTI-VITAMIN [Concomitant]
     Dosage: DAILY
     Route: 048
  11. TRAMADOL HCL [Concomitant]
  12. ALPRAZOLAM [Concomitant]
  13. ALPRAZOLAM [Concomitant]
  14. MECLIZINE [Concomitant]
     Indication: VERTIGO
     Route: 048
  15. CRESTOR [Suspect]
     Indication: BLOOD CHOLESTEROL INCREASED
     Route: 048
     Dates: start: 20100101
  16. ZYRTEC [Concomitant]
     Indication: MULTIPLE ALLERGIES
     Route: 048
  17. SUCRALFATE [Concomitant]
     Indication: PROPHYLAXIS AGAINST GASTROINTESTINAL ULCER
  18. CYCLOBENZAPRINE [Concomitant]
     Indication: MUSCLE RELAXANT THERAPY
     Dosage: 5 MG, 1 TAB 3X PRN
  19. DEPOLUPIRON [Concomitant]
     Indication: MENSTRUAL DISORDER
     Dosage: A SHOT ONCE A MONTH
  20. DEMEROL [Concomitant]
  21. ALPRAZOLAM [Concomitant]
     Indication: PANIC ATTACK
     Dosage: 1TABLET, 2-3 TIMES, AS NEEDED
  22. PROAIR HFA [Concomitant]
     Indication: CHRONIC OBSTRUCTIVE PULMONARY DISEASE
     Route: 055
  23. NEXIUM [Suspect]
     Indication: GASTROOESOPHAGEAL REFLUX DISEASE
     Route: 048
     Dates: start: 20110101
  24. GABAPENTIN [Concomitant]
     Indication: SPINAL DISORDER
     Route: 048
  25. LEVOTHYROXINE SODIUM [Concomitant]
     Indication: THYROID DISORDER
     Route: 048
  26. CYCLOBENZAPRINE [Concomitant]
  27. PREMPRO [Concomitant]
     Dosage: 0.3 MG/1.5 MG ONCE IN THE MORNING
     Route: 048

REACTIONS (35)
  - INTERVERTEBRAL DISC PROTRUSION [None]
  - URINARY INCONTINENCE [None]
  - DYSPHAGIA [None]
  - VOCAL CORD DISORDER [None]
  - PULMONARY OEDEMA [None]
  - STOMATITIS [None]
  - ROAD TRAFFIC ACCIDENT [None]
  - DYSPNOEA [None]
  - SENSATION OF FOREIGN BODY [None]
  - FOREIGN BODY [None]
  - DRUG INEFFECTIVE [None]
  - CHEST PAIN [None]
  - INTERVERTEBRAL DISC DEGENERATION [None]
  - HIATUS HERNIA [None]
  - SCIATIC NERVE INJURY [None]
  - VOMITING [None]
  - INTENTIONAL DRUG MISUSE [None]
  - DYSPEPSIA [None]
  - ENDOMETRIOSIS [None]
  - GASTROOESOPHAGEAL REFLUX DISEASE [None]
  - EROSIVE OESOPHAGITIS [None]
  - NECK PAIN [None]
  - HYPERHIDROSIS [None]
  - MALAISE [None]
  - DRY MOUTH [None]
  - POST-TRAUMATIC NECK SYNDROME [None]
  - HYPERACUSIS [None]
  - OROPHARYNGEAL PLAQUE [None]
  - PANIC ATTACK [None]
  - GASTRIC PH DECREASED [None]
  - CHRONIC OBSTRUCTIVE PULMONARY DISEASE [None]
  - BACK PAIN [None]
  - CANDIDIASIS [None]
  - MUSCLE SPASMS [None]
  - DYSPHONIA [None]
